FAERS Safety Report 8030562-7 (Version None)
Quarter: 2012Q1

REPORT INFORMATION
  Report Type: 
  Country: None (occurrence: None)
  Receive Date: 20120109
  Receipt Date: 20111227
  Transmission Date: 20120608
  Serious: Yes (Hospitalization)
  Sender: FDA-Public Use
  Company Number: FR-SANOFI-AVENTIS-2011SA084803

PATIENT
  Age: 64 Year
  Sex: Female

DRUGS (20)
  1. ALPRAZOLAM [Suspect]
     Route: 048
     Dates: end: 20111007
  2. PINAVERIUM BROMIDE [Suspect]
     Route: 048
     Dates: end: 20111207
  3. LEVOTHYROXINE SODIUM [Suspect]
     Route: 048
     Dates: end: 20111207
  4. CHIBRO-CADRON [Suspect]
     Route: 047
     Dates: end: 20111207
  5. LYRICA [Suspect]
     Route: 048
     Dates: end: 20111207
  6. BACLOFEN [Concomitant]
     Dosage: DOSE:6 UNIT(S)
     Route: 065
  7. MEPRONIZINE [Suspect]
     Dosage: DOSE:1 UNIT(S)
     Route: 048
     Dates: end: 20111207
  8. PRAZEPAM [Suspect]
     Route: 048
     Dates: end: 20111207
  9. METFORMIN HCL [Concomitant]
     Route: 048
  10. BUDESONIDE/FORMOTEROL [Concomitant]
     Dosage: DOSE:2 UNIT(S)
     Route: 065
  11. ACETAMINOPHEN [Concomitant]
     Route: 048
  12. PLAVIX [Concomitant]
     Route: 048
  13. LASIX [Suspect]
     Route: 048
     Dates: end: 20111207
  14. NORMACOL [Concomitant]
     Dosage: DOSE:2 UNIT(S)
     Route: 065
  15. METHOCARBAMOL [Suspect]
     Route: 048
     Dates: end: 20111007
  16. CITALOPRAM HYDROBROMIDE [Concomitant]
     Route: 048
  17. KETOPROFEN [Suspect]
     Route: 048
     Dates: end: 20111207
  18. DESLORATADINE [Concomitant]
     Dosage: DOSE:1 UNIT(S)
     Route: 048
  19. TRANSIPEG /FRA/ [Concomitant]
     Dosage: DOSE:5 UNIT(S)
     Route: 065
  20. PANTOPRAZOLE [Concomitant]
     Route: 048

REACTIONS (3)
  - SYSTEMIC INFLAMMATORY RESPONSE SYNDROME [None]
  - CONFUSIONAL STATE [None]
  - MYOCLONUS [None]
